FAERS Safety Report 4609138-7 (Version None)
Quarter: 2005Q1

REPORT INFORMATION
  Report Type: 
  Country: None (occurrence: None)
  Receive Date: 20050311
  Receipt Date: 20050304
  Transmission Date: 20050727
  Serious: Yes (Hospitalization, Other)
  Sender: FDA-Public Use
  Company Number: 2005040624

PATIENT
  Age: 62 Year
  Sex: Male

DRUGS (3)
  1. LIPITOR [Suspect]
     Indication: BLOOD CHOLESTEROL INCREASED
  2. HERBAL PREPARATION (HERBAL PREPARATION) [Suspect]
     Indication: ILL-DEFINED DISORDER
  3. ALL OTHER THERAPEUTIC PRODUCTS (ALL OTHER THERAPEUTIC PRODUCTS) [Suspect]
     Indication: ILL-DEFINED DISORDER

REACTIONS (2)
  - ATRIAL FIBRILLATION [None]
  - DRUG INTERACTION [None]
